FAERS Safety Report 19518241 (Version 2)
Quarter: 2022Q3

REPORT INFORMATION
  Report Type: Spontaneous
  Country: US (occurrence: US)
  Receive Date: 20210712
  Receipt Date: 20220928
  Transmission Date: 20221027
  Serious: Yes (Other)
  Sender: FDA-Public Use
  Company Number: US-JNJFOC-20210704238

PATIENT
  Age: 38 Year
  Sex: Female

DRUGS (31)
  1. ELMIRON [Suspect]
     Active Substance: PENTOSAN POLYSULFATE SODIUM
     Indication: Cystitis interstitial
     Dosage: TWO 100MG TWICE A DAY
     Route: 048
     Dates: start: 20090402, end: 20130313
  2. ELMIRON [Suspect]
     Active Substance: PENTOSAN POLYSULFATE SODIUM
     Dosage: TWO 100MG TWICE A DAY
     Route: 048
     Dates: start: 20130430, end: 20130629
  3. ELMIRON [Suspect]
     Active Substance: PENTOSAN POLYSULFATE SODIUM
     Dosage: TWO 100MG TWICE A DAY
     Route: 048
     Dates: start: 20130812, end: 20151226
  4. ELMIRON [Suspect]
     Active Substance: PENTOSAN POLYSULFATE SODIUM
     Dosage: TWO 100MG TWICE A DAY
     Route: 048
     Dates: start: 20160126, end: 20160920
  5. ELMIRON [Suspect]
     Active Substance: PENTOSAN POLYSULFATE SODIUM
     Dosage: TWO 100MG TWICE A DAY
     Route: 048
     Dates: start: 20180316, end: 20181220
  6. ELMIRON [Suspect]
     Active Substance: PENTOSAN POLYSULFATE SODIUM
     Dosage: TWO 100MG TWICE A DAY
     Route: 048
     Dates: start: 20190521, end: 201907
  7. ALBUTEROL SULFATE [Concomitant]
     Active Substance: ALBUTEROL SULFATE
     Indication: Asthma
     Route: 065
     Dates: start: 20120525
  8. CULTURELLE [Concomitant]
     Active Substance: LACTOBACILLUS RHAMNOSUS
     Indication: Dyspepsia
     Dates: start: 20131210, end: 20200814
  9. ERGOCALCIFEROL [Concomitant]
     Active Substance: ERGOCALCIFEROL
     Indication: Vitamin D deficiency
     Dates: start: 20131210, end: 20200824
  10. LINOL [Concomitant]
     Indication: Blood triglycerides decreased
     Dates: start: 20131210, end: 20200814
  11. FISH OIL [Concomitant]
     Active Substance: FISH OIL
     Indication: Blood triglycerides decreased
     Dates: start: 20131210, end: 20200812
  12. SYMBICORT [Concomitant]
     Active Substance: BUDESONIDE\FORMOTEROL FUMARATE DIHYDRATE
     Indication: Asthma
     Route: 065
     Dates: start: 20140331
  13. FLUTICASONE [Concomitant]
     Active Substance: FLUTICASONE
     Indication: Asthma
     Dates: start: 20160714
  14. TOPICORT [Concomitant]
     Active Substance: DESOXIMETASONE
     Indication: Hypersensitivity
     Dates: start: 20180831, end: 20200424
  15. WELLBUTRIN [Concomitant]
     Active Substance: BUPROPION HYDROCHLORIDE
     Indication: Depression
     Dates: start: 20190218
  16. PYRIDIUM [Concomitant]
     Active Substance: PHENAZOPYRIDINE
     Indication: Urinary tract pain
     Dates: start: 20190821, end: 20201008
  17. ELAVIL [Concomitant]
     Active Substance: AMITRIPTYLINE HYDROCHLORIDE
     Indication: Depression
     Dates: start: 20130510
  18. NILSTAT [NYSTATIN] [Concomitant]
     Indication: Fungal infection
     Dates: start: 20130523
  19. HYDROXYZINE [Concomitant]
     Active Substance: HYDROXYZINE HYDROCHLORIDE
     Indication: Hypersensitivity
     Dates: start: 20130430
  20. URELLE [Concomitant]
     Active Substance: HYOSCYAMINE SULFATE\METHENAMINE\METHYLENE BLUE\PHENYL SALICYLATE\SODIUM PHOSPHATE, MONOBASIC, MONOHY
     Indication: Pollakiuria
     Dates: start: 20100923, end: 20201216
  21. SINGULAIR [Concomitant]
     Active Substance: MONTELUKAST SODIUM
     Indication: Hypersensitivity
     Dates: start: 20120827, end: 20130303
  22. SINGULAIR [Concomitant]
     Active Substance: MONTELUKAST SODIUM
     Indication: Asthma
     Dates: start: 20130402, end: 20210509
  23. METHYLPREDNISOLONE [Concomitant]
     Active Substance: METHYLPREDNISOLONE
     Indication: Hypersensitivity
     Dates: start: 20130517, end: 20201119
  24. XANAX [Concomitant]
     Active Substance: ALPRAZOLAM
     Indication: Anxiety
     Dates: start: 20130920
  25. ACETAMINOPHEN\HYDROCODONE [Concomitant]
     Active Substance: ACETAMINOPHEN\HYDROCODONE
     Indication: Analgesic therapy
     Dates: start: 20171116
  26. TERAZOL [TERCONAZOLE] [Concomitant]
     Indication: Infection
     Dates: start: 20130402
  27. VALTREX [Concomitant]
     Active Substance: VALACYCLOVIR HYDROCHLORIDE
     Indication: Infection
     Dates: start: 20130427, end: 20211020
  28. DELTASONE [Concomitant]
     Active Substance: PREDNISONE
     Indication: Hypersensitivity
     Dates: start: 20130708
  29. CEPHALEXIN [Concomitant]
     Active Substance: CEPHALEXIN
     Indication: Infection
     Dates: start: 20130405
  30. NYSTATIN [Concomitant]
     Active Substance: NYSTATIN
     Indication: Skin infection
     Dates: start: 20130523
  31. BUPROPION [Concomitant]
     Active Substance: BUPROPION
     Indication: Depression
     Dates: start: 20190123, end: 20210823

REACTIONS (4)
  - Maculopathy [Not Recovered/Not Resolved]
  - Macular degeneration [Not Recovered/Not Resolved]
  - Headache [Unknown]
  - Off label use [Unknown]

NARRATIVE: CASE EVENT DATE: 20090402
